FAERS Safety Report 6153813-2 (Version None)
Quarter: 2009Q2

REPORT INFORMATION
  Report Type: 
  Country: None (occurrence: None)
  Receive Date: 20090414
  Receipt Date: 20070511
  Transmission Date: 20091009
  Serious: Yes (Hospitalization, Other)
  Sender: FDA-Public Use
  Company Number: US-ASTRAZENECA-2006UW22182

PATIENT
  Age: 26277 Day
  Sex: Female
  Weight: 70.8 kg

DRUGS (20)
  1. SEROQUEL [Suspect]
     Indication: SLEEP DISORDER
     Route: 048
     Dates: start: 20050601
  2. SEROQUEL [Suspect]
     Dosage: 25 MG - 100 MG
     Route: 048
     Dates: start: 20030828
  3. LOTENSIN [Concomitant]
  4. REMERON [Concomitant]
  5. CARALFATE [Concomitant]
  6. ZELNORM [Concomitant]
  7. LEVSIL [Concomitant]
  8. ELAVIL [Concomitant]
  9. LIPITOR [Concomitant]
  10. METOPROLOL TARTRATE [Concomitant]
  11. PROTONIX [Concomitant]
  12. MIRTAZAP [Concomitant]
  13. NEXIUM [Concomitant]
  14. PANCREASE [Concomitant]
  15. PROPOXYPHENE HCL CAP [Concomitant]
  16. ULTRAM [Concomitant]
  17. MECLIZINE [Concomitant]
  18. TRAZODONE [Concomitant]
  19. BENTYL [Concomitant]
  20. ZOLOFT [Concomitant]

REACTIONS (17)
  - ARTHRALGIA [None]
  - ARTHRODESIS [None]
  - BACK PAIN [None]
  - CHEST PAIN [None]
  - CIRCULATORY COLLAPSE [None]
  - FOOT FRACTURE [None]
  - GASTROOESOPHAGEAL REFLUX DISEASE [None]
  - HIATUS HERNIA [None]
  - HYPOAESTHESIA [None]
  - IRRITABLE BOWEL SYNDROME [None]
  - MUSCULOSKELETAL PAIN [None]
  - NECK PAIN [None]
  - OESOPHAGITIS [None]
  - PAIN IN EXTREMITY [None]
  - PANCREATITIS [None]
  - PANCREATITIS CHRONIC [None]
  - PAPILLA OF VATER STENOSIS [None]
